FAERS Safety Report 7583695-3 (Version None)
Quarter: 2011Q2

REPORT INFORMATION
  Report Type: 
  Country: None (occurrence: None)
  Receive Date: 20110630
  Receipt Date: 20110622
  Transmission Date: 20111010
  Serious: Yes (Hospitalization)
  Sender: FDA-Public Use
  Company Number: B0719167A

PATIENT
  Sex: Male
  Weight: 66 kg

DRUGS (12)
  1. PERINDOPRIL ERBUMINE [Concomitant]
     Dosage: 2.5MG AT NIGHT
     Route: 065
  2. PREVISCAN [Concomitant]
     Dosage: 1TAB AT NIGHT
     Route: 048
     Dates: start: 20110416
  3. ARIXTRA [Suspect]
     Dosage: 7.5MG PER DAY
     Route: 058
     Dates: start: 20110416, end: 20110510
  4. ATORVASTATIN CALCIUM [Concomitant]
     Dosage: 40MG AT NIGHT
     Route: 065
  5. NEXIUM [Concomitant]
  6. BISOPROLOL FUMARATE [Concomitant]
     Dosage: 1.25MG IN THE MORNING
     Route: 065
  7. ESIDRIX [Concomitant]
     Dosage: 25MG IN THE MORNING
     Route: 065
  8. VIT B1 B6 [Concomitant]
     Route: 065
  9. ASPIRIN [Concomitant]
     Route: 065
  10. LASIX [Concomitant]
     Dosage: 80MG TWICE PER DAY
     Route: 065
  11. SPIRONOLACTONE [Concomitant]
     Dosage: 50MG IN THE MORNING
     Route: 065
  12. POTASSIUM CHLORIDE [Concomitant]
     Dosage: 2UNIT THREE TIMES PER DAY
     Route: 065

REACTIONS (4)
  - BLOOD BLISTER [None]
  - INCORRECT DRUG ADMINISTRATION DURATION [None]
  - SKIN NECROSIS [None]
  - OFF LABEL USE [None]
